FAERS Safety Report 19006476 (Version 1)
Quarter: 2021Q1

REPORT INFORMATION
  Report Type: Spontaneous
  Country: US (occurrence: US)
  Receive Date: 20210311
  Receipt Date: 20210311
  Transmission Date: 20210420
  Serious: Yes (Life-Threatening)
  Sender: FDA-Public Use
  Company Number: None

PATIENT
  Sex: Female
  Weight: 53.6 kg

DRUGS (2)
  1. GENERIC HYDROCORTISONE 10 MG QUALIFEST [Suspect]
     Active Substance: HYDROCORTISONE
     Indication: ADDISON^S DISEASE
     Dosage: ?          OTHER FREQUENCY:2 TABS MORMING, 1 ;?
     Route: 048
  2. GENERIC HYDROCORTISONE 10 MG QUALIFEST [Suspect]
     Active Substance: HYDROCORTISONE
     Indication: ADDISON^S DISEASE
     Dosage: DOSAGE: 1 1/2 TABS EVENING

REACTIONS (4)
  - Cortisol decreased [None]
  - Therapeutic response changed [None]
  - Product substitution issue [None]
  - Blood corticotrophin decreased [None]
